FAERS Safety Report 8062538-8 (Version None)
Quarter: 2012Q1

REPORT INFORMATION
  Report Type: 
  Country: None (occurrence: None)
  Receive Date: 20120123
  Receipt Date: 20120112
  Transmission Date: 20120608
  Serious: Yes (Hospitalization)
  Sender: FDA-Public Use
  Company Number: US-BAYER-2011-101003

PATIENT
  Age: 39 Year
  Sex: Female
  Weight: 70.295 kg

DRUGS (4)
  1. FAT BURNERS [Concomitant]
     Dosage: UNK
     Dates: start: 20041105
  2. VALTREX [Concomitant]
     Indication: ANTIVIRAL PROPHYLAXIS
     Dosage: UNK UNK, QD
     Route: 048
     Dates: start: 20030101, end: 20110101
  3. YASMIN [Suspect]
     Dosage: UNK
     Dates: start: 20010101, end: 20040101
  4. YAZ [Suspect]
     Dosage: UNK
     Dates: start: 20010101, end: 20040101

REACTIONS (2)
  - PULMONARY EMBOLISM [None]
  - PAIN [None]
